FAERS Safety Report 15958215 (Version 1)
Quarter: 2019Q1

REPORT INFORMATION
  Report Type: Spontaneous
  Country: FR (occurrence: FR)
  Receive Date: 20190213
  Receipt Date: 20190213
  Transmission Date: 20190417
  Serious: Yes (Other)
  Sender: FDA-Public Use
  Company Number: FR-PFIZER INC-2019008924

PATIENT
  Age: 30 Year
  Sex: Female
  Weight: 62 kg

DRUGS (1)
  1. SUTENT [Suspect]
     Active Substance: SUNITINIB MALATE
     Dosage: 37.5 MG, 1X/DAY
     Route: 048
     Dates: start: 20181213, end: 20190103

REACTIONS (3)
  - Abortion spontaneous [Recovered/Resolved]
  - Abdominal pain [Unknown]
  - Menorrhagia [Unknown]

NARRATIVE: CASE EVENT DATE: 20190103
